FAERS Safety Report 23882548 (Version 1)
Quarter: 2024Q2

REPORT INFORMATION
  Report Type: Spontaneous
  Country: US (occurrence: US)
  Receive Date: 20240522
  Receipt Date: 20240522
  Transmission Date: 20240716
  Serious: No
  Sender: FDA-Public Use
  Company Number: US-BIOGEN-2024BI01265103

PATIENT
  Sex: Male

DRUGS (1)
  1. SKYCLARYS [Suspect]
     Active Substance: OMAVELOXOLONE
     Indication: Product used for unknown indication
     Dosage: 150 MG IN THE MORNING AND EVENING
     Route: 050

REACTIONS (4)
  - Epistaxis [Unknown]
  - Chromaturia [Unknown]
  - Pruritus [Unknown]
  - Overdose [Unknown]

NARRATIVE: CASE EVENT DATE: 20240513
